FAERS Safety Report 11965755 (Version 1)
Quarter: 2016Q1

REPORT INFORMATION
  Report Type: Spontaneous
  Country: US (occurrence: None)
  Receive Date: 20160125
  Receipt Date: 20160125
  Transmission Date: 20160526
  Serious: No
  Sender: FDA-Public Use
  Company Number: None

PATIENT
  Age: 24 Year
  Sex: Female
  Weight: 84.82 kg

DRUGS (2)
  1. AMOXICILLIN. [Concomitant]
     Active Substance: AMOXICILLIN
  2. NEXPLANON [Suspect]
     Active Substance: ETONOGESTREL

REACTIONS (8)
  - Malaise [None]
  - Headache [None]
  - Visual acuity reduced [None]
  - Dysmenorrhoea [None]
  - Back pain [None]
  - Device difficult to use [None]
  - Embedded device [None]
  - Noninfective oophoritis [None]

NARRATIVE: CASE EVENT DATE: 20160121
